FAERS Safety Report 5093326-2 (Version None)
Quarter: 2006Q3

REPORT INFORMATION
  Report Type: 
  Country: None (occurrence: None)
  Receive Date: 20060828
  Receipt Date: 20060816
  Transmission Date: 20061208
  Serious: Yes (Other)
  Sender: FDA-Public Use
  Company Number: 2006100203

PATIENT
  Age: 50 Year
  Sex: Female

DRUGS (4)
  1. CLINDAMYCIN HCL [Suspect]
     Indication: TOOTH DISORDER
  2. VALORON N RETARD (TILIDINE, NALOXONE) [Suspect]
     Indication: TRIGEMINAL NEURALGIA
     Dosage: ORAL
     Route: 048
  3. OMEPRAZOLE [Concomitant]
  4. ANAFRANIL [Concomitant]

REACTIONS (7)
  - DRUG INTOLERANCE [None]
  - GENERAL PHYSICAL HEALTH DETERIORATION [None]
  - IATROGENIC INJURY [None]
  - IMPAIRED WORK ABILITY [None]
  - PANCREATITIS [None]
  - PSEUDOMEMBRANOUS COLITIS [None]
  - TRIGEMINAL NEURALGIA [None]
